FAERS Safety Report 13421075 (Version 4)
Quarter: 2017Q3

REPORT INFORMATION
  Report Type: Spontaneous
  Country: US (occurrence: US)
  Receive Date: 20170410
  Receipt Date: 20170801
  Transmission Date: 20171127
  Serious: Yes (Other)
  Sender: FDA-Public Use
  Company Number: US-ROCHE-1827366

PATIENT
  Age: 53 Year
  Sex: Female

DRUGS (9)
  1. XELODA [Suspect]
     Active Substance: CAPECITABINE
     Dosage: 2 TABS BID X7 THEN OFF 7 DAYS
     Route: 048
     Dates: start: 20140430
  2. AVASTIN [Suspect]
     Active Substance: BEVACIZUMAB
     Indication: COLORECTAL CANCER STAGE IV
     Route: 042
     Dates: start: 2014
  3. XELODA [Suspect]
     Active Substance: CAPECITABINE
     Indication: RECTAL CANCER
     Dosage: BID 7D ON, 7D OFF
     Route: 048
     Dates: start: 20140501
  4. XELODA [Suspect]
     Active Substance: CAPECITABINE
     Route: 048
  5. XELODA [Suspect]
     Active Substance: CAPECITABINE
     Indication: COLORECTAL CANCER
     Dosage: 2 TABS
     Route: 048
     Dates: start: 20140601
  6. XELODA [Suspect]
     Active Substance: CAPECITABINE
     Dosage: 2 TAB BID X7 THEN OFF 7 DAYS
     Route: 048
     Dates: start: 20140430
  7. XELODA [Suspect]
     Active Substance: CAPECITABINE
     Dosage: 7 DAYS ON/7 DAYS OFF
     Route: 048
     Dates: start: 20170430
  8. XELODA [Suspect]
     Active Substance: CAPECITABINE
     Dosage: 2 TABS
     Route: 048
     Dates: start: 20140601
  9. XELODA [Suspect]
     Active Substance: CAPECITABINE
     Dosage: 7 DAYS ON/7 DAYS OFF
     Route: 048
     Dates: start: 20170430

REACTIONS (15)
  - Headache [Not Recovered/Not Resolved]
  - Nausea [Not Recovered/Not Resolved]
  - Temperature intolerance [Unknown]
  - Hyperaesthesia [Not Recovered/Not Resolved]
  - Dry skin [Not Recovered/Not Resolved]
  - Headache [Recovered/Resolved]
  - Skin fragility [Not Recovered/Not Resolved]
  - Pyrexia [Not Recovered/Not Resolved]
  - Vision blurred [Not Recovered/Not Resolved]
  - Hypertension [Not Recovered/Not Resolved]
  - Blood pressure increased [Not Recovered/Not Resolved]
  - Blister [Not Recovered/Not Resolved]
  - Dizziness [Not Recovered/Not Resolved]
  - Fatigue [Not Recovered/Not Resolved]
  - Vision blurred [Not Recovered/Not Resolved]

NARRATIVE: CASE EVENT DATE: 20140502
